FAERS Safety Report 6628984-1 (Version None)
Quarter: 2010Q1

REPORT INFORMATION
  Report Type: 
  Country: None (occurrence: None)
  Receive Date: 20100311
  Receipt Date: 20090821
  Transmission Date: 20100710
  Serious: Yes (Other)
  Sender: FDA-Public Use
  Company Number: US-BIOGENIDEC-2009BI024902

PATIENT
  Age: 39 Year
  Sex: Female

DRUGS (3)
  1. AVONEX [Suspect]
     Indication: MULTIPLE SCLEROSIS
     Route: 030
     Dates: start: 20090731
  2. CARBATROL [Concomitant]
     Indication: CONVULSION
  3. TOPAMAX [Concomitant]
     Indication: CONVULSION

REACTIONS (7)
  - BURNING SENSATION [None]
  - CHILLS [None]
  - CONVULSION [None]
  - EAR DISCOMFORT [None]
  - HOT FLUSH [None]
  - INCREASED BRONCHIAL SECRETION [None]
  - RHINORRHOEA [None]
